FAERS Safety Report 15579199 (Version 4)
Quarter: 2019Q3

REPORT INFORMATION
  Report Type: Spontaneous
  Country: US (occurrence: US)
  Receive Date: 20181102
  Receipt Date: 20190827
  Transmission Date: 20191004
  Serious: No
  Sender: FDA-Public Use
  Company Number: US-SA-2018SA300850

PATIENT
  Age: 14 Year
  Sex: Male
  Weight: 54.43 kg

DRUGS (8)
  1. CITIRIZINE [CETIRIZINE HYDROCHLORIDE] [Concomitant]
  2. FISH OIL [Concomitant]
     Active Substance: FISH OIL
  3. VITAMINS NOS [Concomitant]
     Active Substance: VITAMINS
  4. PROBIOTIC BLEND [Concomitant]
  5. XYZAL [Concomitant]
     Active Substance: LEVOCETIRIZINE DIHYDROCHLORIDE
  6. DUPIXENT [Suspect]
     Active Substance: DUPILUMAB
     Dosage: 300 MG, QOW
     Route: 058
     Dates: start: 201907
  7. TACROLIMUS. [Concomitant]
     Active Substance: TACROLIMUS
  8. DUPIXENT [Suspect]
     Active Substance: DUPILUMAB
     Indication: DERMATITIS ATOPIC
     Dosage: 300 MG, QOW
     Route: 058
     Dates: start: 20181023

REACTIONS (7)
  - Condition aggravated [Unknown]
  - Injection site pain [Unknown]
  - Injection site mass [Unknown]
  - Eye pruritus [Unknown]
  - Product prescribing error [Unknown]
  - Acne [Unknown]
  - Drug ineffective [Unknown]

NARRATIVE: CASE EVENT DATE: 20181023
